FAERS Safety Report 4289704-1 (Version None)
Quarter: 2004Q1

REPORT INFORMATION
  Report Type: 
  Country: None (occurrence: None)
  Receive Date: 20040206
  Receipt Date: 20030507
  Transmission Date: 20041129
  Serious: Yes (Hospitalization)
  Sender: FDA-Public Use
  Company Number: MK200305-0055-1

PATIENT
  Age: 33 Year
  Sex: Female

DRUGS (2)
  1. OPTIMARK [Suspect]
     Indication: ANGIOGRAM
     Dosage: 40CC,IV, ONCE
     Route: 042
     Dates: start: 20030507, end: 20030507
  2. OPTIMARK [Suspect]
     Indication: RENAL SCAN
     Dosage: 40CC,IV, ONCE
     Route: 042
     Dates: start: 20030507, end: 20030507

REACTIONS (6)
  - CHEST PAIN [None]
  - DYSPNOEA [None]
  - NAUSEA [None]
  - SYNCOPE [None]
  - TACHYCARDIA [None]
  - VOMITING [None]
